FAERS Safety Report 9381943 (Version 4)
Quarter: 2013Q3

REPORT INFORMATION
  Report Type: Spontaneous
  Country: US (occurrence: US)
  Receive Date: 20130703
  Receipt Date: 20130807
  Transmission Date: 20140515
  Serious: Yes (Hospitalization)
  Sender: FDA-Public Use
  Company Number: US-GILEAD-2013-0078322

PATIENT
  Sex: Male

DRUGS (4)
  1. LETAIRIS [Suspect]
     Indication: PULMONARY HYPERTENSION
     Dosage: 5 MG, QD
     Route: 048
     Dates: start: 20130610
  2. LETAIRIS [Suspect]
     Indication: PULMONARY FIBROSIS
     Dosage: 10 MG, QD
     Route: 048
  3. LETAIRIS [Suspect]
     Indication: CARDIAC VALVE DISEASE
  4. ADCIRCA [Concomitant]

REACTIONS (3)
  - Cardiac failure congestive [Unknown]
  - Fluid retention [Unknown]
  - Dyspnoea [Unknown]
